FAERS Safety Report 15550786 (Version 1)
Quarter: 2018Q4

REPORT INFORMATION
  Report Type: Spontaneous
  Country: FR (occurrence: FR)
  Receive Date: 20181025
  Receipt Date: 20181025
  Transmission Date: 20190205
  Serious: Yes (Other)
  Sender: FDA-Public Use
  Company Number: FR-PFIZER INC-2018420323

PATIENT
  Age: 45 Year
  Sex: Male

DRUGS (2)
  1. ALPRAZOLAM. [Suspect]
     Active Substance: ALPRAZOLAM
     Dosage: 2 DF, 1X/DAY (MORNING AND EVENING)
     Route: 048
     Dates: start: 20180510
  2. NOCTAMIDE [Suspect]
     Active Substance: LORMETAZEPAM
     Dosage: 1 DF, 1X/DAY (1DF AT BED TIME)
     Route: 048
     Dates: start: 20180510

REACTIONS (2)
  - Prescription form tampering [Recovering/Resolving]
  - Drug dependence [Recovering/Resolving]
